FAERS Safety Report 4278276-3 (Version None)
Quarter: 2004Q1

REPORT INFORMATION
  Report Type: 
  Country: None (occurrence: None)
  Receive Date: 20040121
  Receipt Date: 20040109
  Transmission Date: 20041129
  Serious: Yes (Hospitalization)
  Sender: FDA-Public Use
  Company Number: USA040155947

PATIENT
  Age: 76 Year
  Sex: Female

DRUGS (9)
  1. FORTEO [Suspect]
     Indication: OSTEOPOROSIS
     Dosage: 20 UG DAY
     Dates: start: 20031101
  2. PROPOXYPHENE HCL [Concomitant]
  3. VIOXX [Concomitant]
  4. VALIUM [Concomitant]
  5. ACIPHEX [Concomitant]
  6. ASPIRIN [Concomitant]
  7. MULTIVITAMIN [Concomitant]
  8. CALCIUM [Concomitant]
  9. ALDACTONE (SPRIONOLACTONE) [Concomitant]

REACTIONS (2)
  - JOINT SWELLING [None]
  - PHARMACEUTICAL PRODUCT COMPLAINT [None]
